FAERS Safety Report 13832463 (Version 1)
Quarter: 2017Q3

REPORT INFORMATION
  Report Type: Spontaneous
  Country: US (occurrence: US)
  Receive Date: 20170803
  Receipt Date: 20170803
  Transmission Date: 20171127
  Serious: No
  Sender: FDA-Public Use
  Company Number: None

PATIENT
  Age: 73 Year
  Sex: Female
  Weight: 45.9 kg

DRUGS (4)
  1. NAMZARIC [Suspect]
     Active Substance: DONEPEZIL HYDROCHLORIDE\MEMANTINE HYDROCHLORIDE
     Indication: DEMENTIA
     Dosage: ?          QUANTITY:1 CAPSULE(S);?
     Route: 048
  2. VITAMIN B12 [Concomitant]
     Active Substance: CYANOCOBALAMIN
  3. MULTIVITAMIN [Concomitant]
     Active Substance: VITAMINS
  4. ALLERGY PILL [Concomitant]
     Active Substance: UNSPECIFIED INGREDIENT

REACTIONS (7)
  - Nausea [None]
  - Dizziness [None]
  - Decreased appetite [None]
  - Loss of personal independence in daily activities [None]
  - Dyspnoea [None]
  - Drug ineffective [None]
  - Asthenia [None]

NARRATIVE: CASE EVENT DATE: 20170801
